FAERS Safety Report 5338960-7 (Version None)
Quarter: 2007Q2

REPORT INFORMATION
  Report Type: 
  Country: None (occurrence: None)
  Receive Date: 20070404
  Receipt Date: 20070130
  Transmission Date: 20071010
  Serious: Yes (Other)
  Sender: FDA-Public Use
  Company Number: HQWYE346102FEB07

PATIENT
  Age: 53 Year
  Sex: Female
  Weight: 56.75 kg

DRUGS (4)
  1. ALAVERT [Suspect]
     Indication: EYE PRURITUS
     Dosage: 1 TABLET X 1, ORAL
     Route: 048
     Dates: start: 20070127, end: 20070127
  2. ALAVERT [Suspect]
     Indication: LACRIMATION INCREASED
     Dosage: 1 TABLET X 1, ORAL
     Route: 048
     Dates: start: 20070127, end: 20070127
  3. ALAVERT [Suspect]
     Indication: RHINORRHOEA
     Dosage: 1 TABLET X 1, ORAL
     Route: 048
     Dates: start: 20070127, end: 20070127
  4. ALAVERT [Suspect]
     Indication: SNEEZING
     Dosage: 1 TABLET X 1, ORAL
     Route: 048
     Dates: start: 20070127, end: 20070127

REACTIONS (1)
  - DRUG INEFFECTIVE [None]
